FAERS Safety Report 6391097-0 (Version None)
Quarter: 2009Q4

REPORT INFORMATION
  Report Type: 
  Country: None (occurrence: None)
  Receive Date: 20091006
  Receipt Date: 20091006
  Transmission Date: 20100525
  Serious: Yes (Other)
  Sender: FDA-Public Use
  Company Number: None

PATIENT
  Age: 28 Year
  Sex: Female
  Weight: 112.9457 kg

DRUGS (1)
  1. TOPAMAX [Suspect]
     Indication: AFFECTIVE DISORDER
     Dosage: 200MG ONCE TAB PO BID APPROX 3-4 MOS AGO
     Route: 048
     Dates: start: 20090101

REACTIONS (3)
  - FEAR [None]
  - MIGRAINE [None]
  - NAUSEA [None]
